FAERS Safety Report 17829772 (Version 2)
Quarter: 2020Q2

REPORT INFORMATION
  Report Type: Spontaneous
  Country: CN (occurrence: CN)
  Receive Date: 20200527
  Receipt Date: 20200529
  Transmission Date: 20200714
  Serious: Yes (Hospitalization, Other)
  Sender: FDA-Public Use
  Company Number: CN-SHIRE-CN202016860

PATIENT

DRUGS (5)
  1. AMLODIPINE [Concomitant]
     Active Substance: AMLODIPINE BESYLATE
     Indication: HYPERTENSION
  2. ROXADUSTAT. [Concomitant]
     Active Substance: ROXADUSTAT
     Indication: ANAEMIA
  3. CALCIUM CARBONATE. [Concomitant]
     Active Substance: CALCIUM CARBONATE
     Indication: HYPOCALCAEMIA
  4. FOSRENOL [Suspect]
     Active Substance: LANTHANUM CARBONATE
     Indication: HYPERPHOSPHATAEMIA
     Dosage: UNK, 3X/DAY:TID
     Route: 048
     Dates: start: 20200424, end: 20200515
  5. BENAZEPRIL [Concomitant]
     Active Substance: BENAZEPRIL HYDROCHLORIDE
     Indication: HYPERTENSION

REACTIONS (11)
  - Cholelithiasis [Unknown]
  - Abdominal pain upper [Unknown]
  - Vomiting [Unknown]
  - Intestinal obstruction [Unknown]
  - Pyrexia [Unknown]
  - Appetite disorder [Unknown]
  - Asthenia [Unknown]
  - Peritonitis [Unknown]
  - Nausea [Unknown]
  - Dilatation intrahepatic duct acquired [Unknown]
  - Abdominal fat apron [Unknown]

NARRATIVE: CASE EVENT DATE: 20200513
